FAERS Safety Report 24044169 (Version 2)
Quarter: 2024Q3

REPORT INFORMATION
  Report Type: Spontaneous
  Country: SA (occurrence: SA)
  Receive Date: 20240703
  Receipt Date: 20240816
  Transmission Date: 20241017
  Serious: No
  Sender: EMD SERONO INC
  Company Number: SA-Merck Healthcare KGaA-2024034649

PATIENT
  Age: 22 Year
  Sex: Female

DRUGS (1)
  1. MAVENCLAD [Suspect]
     Active Substance: CLADRIBINE
     Indication: Multiple sclerosis
     Route: 048

REACTIONS (2)
  - Headache [Recovering/Resolving]
  - Multiple sclerosis [Recovering/Resolving]
